FAERS Safety Report 23824221 (Version 1)
Quarter: 2024Q2

REPORT INFORMATION
  Report Type: Spontaneous
  Country: RU (occurrence: RU)
  Receive Date: 20240507
  Receipt Date: 20240507
  Transmission Date: 20240716
  Serious: Yes (Other)
  Sender: FDA-Public Use
  Company Number: RU-SA-SAC20240430001219

PATIENT
  Age: 47 Year
  Sex: Female

DRUGS (6)
  1. DUPILUMAB [Suspect]
     Active Substance: DUPILUMAB
     Indication: Asthma
     Dosage: 600 MG, 1X
     Route: 065
     Dates: start: 20240322, end: 20240322
  2. METHYLPREDNISOLONE [Suspect]
     Active Substance: METHYLPREDNISOLONE
     Dosage: 2 DF, QD
  3. METHYLPREDNISOLONE [Suspect]
     Active Substance: METHYLPREDNISOLONE
     Dosage: 2 MG
  4. VISINE ALERGY [Concomitant]
     Dosage: 1 DROP 2 TIMES A DAY
  5. FEXADINE [Concomitant]
     Dosage: 180 MG ONCE A DAY, 10 DAYS
  6. CARBOMER [Concomitant]
     Active Substance: CARBOMER
     Dosage: UNK UNK, QD, AT NIGHT DAILY

REACTIONS (10)
  - Respiratory failure [Unknown]
  - Dyspnoea [Unknown]
  - Sneezing [Unknown]
  - Nasal congestion [Unknown]
  - Rash vesicular [Unknown]
  - Urticaria [Unknown]
  - Erythema [Unknown]
  - Conjunctivitis [Unknown]
  - Asthma [Recovering/Resolving]
  - Cough [Recovering/Resolving]

NARRATIVE: CASE EVENT DATE: 20240101
